FAERS Safety Report 9973614 (Version 1)
Quarter: 2014Q1

REPORT INFORMATION
  Report Type: Spontaneous
  Country: US (occurrence: US)
  Receive Date: 20140306
  Receipt Date: 20140306
  Transmission Date: 20141002
  Serious: Yes (Life-Threatening, Other)
  Sender: FDA-Public Use
  Company Number: US-BAYER-2014-029909

PATIENT
  Sex: Female

DRUGS (2)
  1. ALEVE GELCAPS [Suspect]
     Dosage: 2 DF, UNK
     Route: 048
  2. BAYER GENUINE ASPIRIN ORIGINAL STRENGTH [Suspect]
     Dosage: UNK
     Route: 048

REACTIONS (8)
  - Kidney infection [None]
  - Drug hypersensitivity [None]
  - Swelling [None]
  - Tinnitus [None]
  - Bronchitis [None]
  - Respiratory tract congestion [None]
  - Speech disorder [None]
  - Incorrect drug administration duration [None]
